FAERS Safety Report 9103379 (Version 1)
Quarter: 2013Q1

REPORT INFORMATION
  Report Type: Spontaneous
  Country: FR (occurrence: FR)
  Receive Date: 20130219
  Receipt Date: 20130219
  Transmission Date: 20140127
  Serious: Yes (Hospitalization)
  Sender: FDA-Public Use
  Company Number: FR-PFIZER INC-2013060853

PATIENT
  Age: 73 Year
  Sex: Male

DRUGS (9)
  1. ZYVOXID [Suspect]
     Indication: SEPSIS
     Dosage: 600 MG, 2X/DAY
     Route: 048
     Dates: start: 20121126, end: 20130103
  2. CIPROFLOXACIN HCL [Suspect]
     Indication: SEPSIS
     Dosage: 750 MG, 2X/DAY
     Route: 048
     Dates: start: 20121205, end: 20130103
  3. LANTUS [Concomitant]
  4. DIFFU K [Concomitant]
  5. JOSIR [Concomitant]
  6. SERETIDE [Concomitant]
  7. PREVISCAN [Concomitant]
  8. TIENAM [Concomitant]
     Indication: SEPSIS
     Dosage: UNK
     Dates: end: 20121125
  9. NEBCINE [Concomitant]
     Indication: SEPSIS
     Dosage: UNK

REACTIONS (1)
  - Pancytopenia [Recovered/Resolved]
